FAERS Safety Report 17048731 (Version 1)
Quarter: 2019Q4

REPORT INFORMATION
  Report Type: Report from Study
  Country: CR (occurrence: CR)
  Receive Date: 20191119
  Receipt Date: 20191119
  Transmission Date: 20200122
  Serious: Yes (Hospitalization)
  Sender: FDA-Public Use
  Company Number: CR-SA-2019SA317089

PATIENT
  Age: 81 Year
  Sex: Female

DRUGS (3)
  1. IRBESARTAN. [Suspect]
     Active Substance: IRBESARTAN
     Indication: HYPERTENSION
     Dosage: 1 DF (300MG), QD
     Route: 048
     Dates: start: 2016, end: 201905
  2. IRBESARTAN. [Suspect]
     Active Substance: IRBESARTAN
     Dosage: 1 DF (150 MG), QD
     Route: 048
     Dates: start: 201905
  3. IRBESARTAN. [Suspect]
     Active Substance: IRBESARTAN
     Dosage: 1 DF (150MG), QD
     Route: 048
     Dates: start: 2014, end: 2016

REACTIONS (3)
  - Blood sodium abnormal [Recovered/Resolved]
  - Blood pressure inadequately controlled [Recovered/Resolved]
  - Hypersensitivity [Recovered/Resolved]

NARRATIVE: CASE EVENT DATE: 201905
